FAERS Safety Report 16679963 (Version 3)
Quarter: 2019Q3

REPORT INFORMATION
  Report Type: Report from Study
  Country: CA (occurrence: CA)
  Receive Date: 20190807
  Receipt Date: 20190823
  Transmission Date: 20191004
  Serious: Yes (Other)
  Sender: FDA-Public Use
  Company Number: CA-JNJFOC-20190803481

PATIENT
  Age: 38 Year
  Sex: Female
  Weight: 97.5 kg

DRUGS (1)
  1. REMICADE [Suspect]
     Active Substance: INFLIXIMAB
     Indication: CROHN^S DISEASE
     Route: 042
     Dates: start: 20141125

REACTIONS (9)
  - Hypertension [Unknown]
  - Oral herpes [Unknown]
  - Fatigue [Unknown]
  - Hypoaesthesia [Unknown]
  - Menstruation delayed [Unknown]
  - Tonsillitis streptococcal [Recovered/Resolved]
  - Headache [Unknown]
  - Alopecia [Unknown]
  - Pain in extremity [Unknown]

NARRATIVE: CASE EVENT DATE: 201907
